FAERS Safety Report 6836288-7 (Version None)
Quarter: 2010Q3

REPORT INFORMATION
  Report Type: 
  Country: None (occurrence: None)
  Receive Date: 20100713
  Receipt Date: 20100608
  Transmission Date: 20110219
  Serious: Yes (Death)
  Sender: FDA-Public Use
  Company Number: US-TYCO HEALTHCARE/MALLINCKRODT-T201001327

PATIENT

DRUGS (4)
  1. OXYCODONE HCL [Suspect]
     Dosage: UNK
  2. METHADOSE [Suspect]
     Dosage: UNK
  3. ALPRAZOLAM [Suspect]
     Dosage: UNK
  4. CARISOPRODOL [Suspect]
     Dosage: UNK

REACTIONS (1)
  - DRUG TOXICITY [None]
